FAERS Safety Report 14935888 (Version 7)
Quarter: 2018Q3

REPORT INFORMATION
  Report Type: Spontaneous
  Country: US (occurrence: US)
  Receive Date: 20180524
  Receipt Date: 20180823
  Transmission Date: 20181010
  Serious: No
  Sender: FDA-Public Use
  Company Number: US-ACTELION-A-US2018-171821

PATIENT
  Age: 46 Year
  Sex: Female
  Weight: 72.56 kg

DRUGS (25)
  1. OXYCODONE [Concomitant]
     Active Substance: OXYCODONE
     Dosage: UNK, PRN
  2. AZATHIOPRINE. [Concomitant]
     Active Substance: AZATHIOPRINE
     Dosage: 50 MG, TID
  3. SYNTHROID [Concomitant]
     Active Substance: LEVOTHYROXINE SODIUM
     Dosage: 1.7 MG, UNK
  4. TUMS [Concomitant]
     Active Substance: CALCIUM CARBONATE
     Dosage: 75 MG, TID
  5. VELETRI [Suspect]
     Active Substance: EPOPROSTENOL
     Dosage: 6 NG/KG, PER MIN
     Route: 042
  6. VELETRI [Suspect]
     Active Substance: EPOPROSTENOL
     Dosage: 10 NG/KG, PER MIN
     Route: 042
  7. VELETRI [Suspect]
     Active Substance: EPOPROSTENOL
     Dosage: 11 NG/KG, PER MIN
     Route: 042
  8. SILDENAFIL. [Concomitant]
     Active Substance: SILDENAFIL
     Dosage: 20 MG, TID
  9. ATORVASTATIN [Concomitant]
     Active Substance: ATORVASTATIN
     Dosage: 20 MG, UNK
  10. VENTOLIN [Concomitant]
     Active Substance: ALBUTEROL SULFATE
     Dosage: UNK, PRN
  11. ZOLPIDEM [Concomitant]
     Active Substance: ZOLPIDEM\ZOLPIDEM TARTRATE
     Dosage: 10 MG, UNK
  12. ASPIRIN 81 [Concomitant]
     Active Substance: ASPIRIN
     Indication: ANTIPHOSPHOLIPID ANTIBODIES
     Dosage: 81 MG, UNK
  13. FLOVENT [Concomitant]
     Active Substance: FLUTICASONE PROPIONATE
  14. HYDROXYZINE [Concomitant]
     Active Substance: HYDROXYZINE HYDROCHLORIDE
     Dosage: 10 MG, UNK
  15. RANITIDINE. [Concomitant]
     Active Substance: RANITIDINE
     Dosage: 100 MG, UNK
  16. VELETRI [Suspect]
     Active Substance: EPOPROSTENOL
     Indication: PULMONARY ARTERIAL HYPERTENSION
     Dosage: 8 NG/KG, PER MIN
     Route: 042
     Dates: start: 20180423
  17. BACLOFEN. [Concomitant]
     Active Substance: BACLOFEN
     Dosage: 20 MG, BID
  18. CLARITIN [Concomitant]
     Active Substance: LORATADINE
     Dosage: 10 MG, UNK
  19. GABAPENTIN. [Concomitant]
     Active Substance: GABAPENTIN
     Dosage: 300 MG, QPM
  20. OMEPRAZOLE. [Concomitant]
     Active Substance: OMEPRAZOLE
     Dosage: 20 MG, BID
  21. PREDNISONE. [Concomitant]
     Active Substance: PREDNISONE
     Dosage: 10 MG, UNK
  22. RIMANTADINE [Concomitant]
     Active Substance: RIMANTADINE HYDROCHLORIDE
     Dosage: 100 MG, UNK
  23. VITAMIN D [Concomitant]
     Active Substance: CHOLECALCIFEROL
     Dosage: UNK , UNK
  24. FUROSEMIDE. [Concomitant]
     Active Substance: FUROSEMIDE
     Dosage: 20 MG, UNK
  25. ADCIRCA [Concomitant]
     Active Substance: TADALAFIL

REACTIONS (15)
  - Pain in jaw [Unknown]
  - Central venous catheterisation [Unknown]
  - Hypotension [Unknown]
  - Infusion site mass [Unknown]
  - Nausea [Unknown]
  - Diarrhoea [Unknown]
  - Fatigue [Unknown]
  - Catheter site vesicles [Unknown]
  - Flushing [Unknown]
  - Headache [Unknown]
  - Catheter site erythema [Unknown]
  - Malaise [Unknown]
  - Catheter site haemorrhage [Recovering/Resolving]
  - Catheter site inflammation [Unknown]
  - Infusion site pain [Unknown]

NARRATIVE: CASE EVENT DATE: 20180425
